FAERS Safety Report 4337158-9 (Version None)
Quarter: 2004Q2

REPORT INFORMATION
  Report Type: 
  Country: None (occurrence: None)
  Receive Date: 20040408
  Receipt Date: 20040329
  Transmission Date: 20050107
  Serious: Yes (Hospitalization, Other)
  Sender: FDA-Public Use
  Company Number: HQWYE212729MAR04

PATIENT
  Age: 29 Year
  Sex: Female

DRUGS (8)
  1. AVLOCARDYL (PROPRANOLOL HYDROCHLORIDE) [Suspect]
     Dosage: UNSPECIFIED
  2. BUMETANIDE [Suspect]
     Dosage: UNSPEDCIFIED
     Route: 048
  3. ACETAMINOPHEN [Suspect]
     Dosage: UNSPECIFIED
  4. NEORECORMON  (EPOETIN  BETA) [Suspect]
  5. PROGRAF [Suspect]
     Route: 048
  6. FOLIC ACID [Suspect]
     Indication: HYPERHOMOCYSTEINAEMIA
  7. TAREG  (VALSARTAN) [Suspect]
     Indication: HYPERTENSION
     Dosage: 2 DOSE PER 1 DAY
     Route: 048
     Dates: start: 20030315, end: 20040114
  8. ZOMIG [Suspect]
     Indication: MIGRAINE

REACTIONS (10)
  - ABORTION INDUCED [None]
  - BLOOD HOMOCYSTEINE INCREASED [None]
  - CONDITION AGGRAVATED [None]
  - DRUG EXPOSURE DURING PREGNANCY [None]
  - FOETAL MOVEMENTS DECREASED [None]
  - GASTROINTESTINAL MALFORMATION [None]
  - HYPERTENSION [None]
  - KIDNEY MALFORMATION [None]
  - OLIGOHYDRAMNIOS [None]
  - RENAL FAILURE [None]
